FAERS Safety Report 24430517 (Version 2)
Quarter: 2024Q4

REPORT INFORMATION
  Report Type: Spontaneous
  Country: US (occurrence: US)
  Receive Date: 20241013
  Receipt Date: 20241018
  Transmission Date: 20250115
  Serious: Yes (Death, Life-Threatening, Hospitalization, Other)
  Sender: ADVANZ PHARMA
  Company Number: US-MLMSERVICE-20240924-PI204818-00218-1

PATIENT

DRUGS (5)
  1. HYDROXYCHLOROQUINE [Suspect]
     Active Substance: HYDROXYCHLOROQUINE
     Indication: Rheumatoid arthritis-associated interstitial lung disease
     Dosage: 200 MG, QD
  2. PREDNISONE [Suspect]
     Active Substance: PREDNISONE
     Indication: Rheumatoid arthritis-associated interstitial lung disease
     Dosage: 5 MG, QD
  3. METHOTREXATE [Suspect]
     Active Substance: METHOTREXATE
     Indication: Rheumatoid arthritis-associated interstitial lung disease
     Dosage: 10 MG, QD
  4. OXYGEN [Concomitant]
     Active Substance: OXYGEN
     Indication: Oxygen therapy
     Dosage: UNK
  5. APIXABAN [Concomitant]
     Active Substance: APIXABAN
     Indication: Pulmonary embolism
     Dosage: UNK

REACTIONS (11)
  - Multiple organ dysfunction syndrome [Fatal]
  - Acute respiratory distress syndrome [Unknown]
  - Respiratory failure [Unknown]
  - Pulmonary tuberculosis [Unknown]
  - Depressed level of consciousness [Unknown]
  - Dyspnoea [Unknown]
  - Chest pain [Unknown]
  - Lung infiltration [Unknown]
  - Lung consolidation [Unknown]
  - Pulmonary cavitation [Unknown]
  - COVID-19 [Unknown]
